FAERS Safety Report 4393727-1 (Version None)
Quarter: 2004Q3

REPORT INFORMATION
  Report Type: 
  Country: None (occurrence: None)
  Receive Date: 20040709
  Receipt Date: 20031201
  Transmission Date: 20050211
  Serious: Yes (Life-Threatening, Hospitalization)
  Sender: FDA-Public Use
  Company Number: FR-GLAXOSMITHKLINE-B0316638A

PATIENT
  Age: 46 Year
  Sex: Male

DRUGS (1)
  1. AUGMENTIN [Suspect]
     Dosage: 1G TWICE PER DAY
     Route: 048
     Dates: start: 20021222, end: 20021226

REACTIONS (31)
  - ANAEMIA [None]
  - ANGIONEUROTIC OEDEMA [None]
  - BACTERIAL SEPSIS [None]
  - BLOOD ALKALINE PHOSPHATASE INCREASED [None]
  - BLOOD BILIRUBIN INCREASED [None]
  - BRADYCARDIA [None]
  - BRONCHOPNEUMONIA [None]
  - CARDIAC ARREST [None]
  - COMA [None]
  - CONJUNCTIVAL HAEMORRHAGE [None]
  - DEHYDRATION [None]
  - DELIRIUM TREMENS [None]
  - ECCHYMOSIS [None]
  - GAMMA-GLUTAMYLTRANSFERASE INCREASED [None]
  - GLOSSITIS [None]
  - HEPATITIS CHOLESTATIC [None]
  - INFLAMMATION [None]
  - JAUNDICE [None]
  - LEUKOPENIA [None]
  - NOSOCOMIAL INFECTION [None]
  - PETECHIAE [None]
  - PNEUMOTHORAX [None]
  - PRURITUS [None]
  - PYREXIA [None]
  - RESPIRATORY FAILURE [None]
  - SKIN BURNING SENSATION [None]
  - SKIN INFECTION [None]
  - STEVENS-JOHNSON SYNDROME [None]
  - STOMATITIS [None]
  - THROMBOCYTOPENIA [None]
  - TRANSAMINASES INCREASED [None]
